FAERS Safety Report 10062640 (Version 1)
Quarter: 2014Q1

REPORT INFORMATION
  Report Type: Spontaneous
  Country: US (occurrence: None)
  Receive Date: 20140318
  Receipt Date: 20140318
  Transmission Date: 20141002
  Serious: Yes (Other)
  Sender: FDA-Public Use
  Company Number: 096005

PATIENT
  Age: 76 Year
  Sex: Male
  Weight: 83 kg

DRUGS (8)
  1. ROTIGOTINE [Suspect]
     Indication: PARKINSON^S DISEASE
     Route: 062
     Dates: start: 201307, end: 201307
  2. MONOPRIL [Concomitant]
  3. ATENOLOL [Concomitant]
  4. METFORMIN [Concomitant]
  5. FINASTERIDE [Concomitant]
  6. PROTONIX [Concomitant]
  7. MIRAPEX [Concomitant]
  8. JANUVIA [Concomitant]

REACTIONS (2)
  - Delirium [None]
  - Hallucination, visual [None]
